FAERS Safety Report 8477164-6 (Version None)
Quarter: 2012Q2

REPORT INFORMATION
  Report Type: 
  Country: None (occurrence: None)
  Receive Date: 20120625
  Receipt Date: 20120625
  Transmission Date: 20120825
  Serious: Yes (Hospitalization)
  Sender: FDA-Public Use
  Company Number: None

PATIENT
  Sex: Male

DRUGS (3)
  1. VICTRELIS [Concomitant]
  2. RIBAVIRIN [Suspect]
     Indication: HEPATITIS C
     Dosage: 600MG BID PO
     Route: 048
     Dates: start: 20120426, end: 20120611
  3. PEGASYS [Suspect]
     Indication: HEPATITIS C
     Dosage: 180MCG QW SQ
     Route: 058
     Dates: start: 20120426, end: 20120611

REACTIONS (4)
  - LOCALISED INTRAABDOMINAL FLUID COLLECTION [None]
  - FULL BLOOD COUNT DECREASED [None]
  - INFECTION [None]
  - RENAL IMPAIRMENT [None]
